FAERS Safety Report 10469784 (Version 1)
Quarter: 2014Q3

REPORT INFORMATION
  Report Type: Spontaneous
  Country: US (occurrence: None)
  Receive Date: 20140922
  Receipt Date: 20140922
  Transmission Date: 20150326
  Serious: No
  Sender: FDA-Public Use
  Company Number: None

PATIENT
  Age: 2 Year
  Sex: Female
  Weight: 15.42 kg

DRUGS (1)
  1. PULMICORT TURBUHALER [Suspect]
     Active Substance: BUDESONIDE
     Indication: ASTHMA
     Dosage: 1 RESPULE TWICE DAILY INHALATION
     Route: 055
     Dates: start: 20140223, end: 20140529

REACTIONS (1)
  - Dermatitis [None]

NARRATIVE: CASE EVENT DATE: 20140521
